FAERS Safety Report 8532262-3 (Version None)
Quarter: 2012Q3

REPORT INFORMATION
  Report Type: 
  Country: None (occurrence: None)
  Receive Date: 20120724
  Receipt Date: 20120719
  Transmission Date: 20120928
  Serious: Yes (Hospitalization)
  Sender: FDA-Public Use
  Company Number: US-AMGEN-USASP2012045107

PATIENT
  Age: 72 Year
  Sex: Male
  Weight: 82.6 kg

DRUGS (1)
  1. NPLATE [Suspect]
     Indication: IDIOPATHIC THROMBOCYTOPENIC PURPURA
     Dates: start: 20111101

REACTIONS (2)
  - ARTHRALGIA [None]
  - PLATELET COUNT DECREASED [None]
